FAERS Safety Report 9297131 (Version 2)
Quarter: 2013Q3

REPORT INFORMATION
  Report Type: Report from Study
  Country: FR (occurrence: FR)
  Receive Date: 20130520
  Receipt Date: 20130704
  Transmission Date: 20140515
  Serious: Yes (Hospitalization)
  Sender: FDA-Public Use
  Company Number: FR-ROCHE-1225734

PATIENT
  Age: 63 Year
  Sex: Male
  Weight: 83.3 kg

DRUGS (5)
  1. METHOXY POLYETHYLENE GLYCOL-EPOETIN BETA [Suspect]
     Indication: NEPHROGENIC ANAEMIA
     Route: 065
  2. GLUCOPHAGE [Concomitant]
     Route: 048
  3. PRAVASTATINE [Concomitant]
     Route: 048
  4. NEORAL [Concomitant]
     Route: 048
  5. ZYLORIC [Concomitant]
     Route: 048

REACTIONS (1)
  - Escherichia sepsis [Recovered/Resolved]
